FAERS Safety Report 6043472-1 (Version None)
Quarter: 2009Q1

REPORT INFORMATION
  Report Type: 
  Country: None (occurrence: None)
  Receive Date: 20090115
  Receipt Date: 20090115
  Transmission Date: 20090719
  Serious: Yes (Hospitalization)
  Sender: FDA-Public Use
  Company Number: None

PATIENT
  Age: 33 Year
  Sex: Male
  Weight: 72.8 kg

DRUGS (2)
  1. VENLAFAXINE HCL [Suspect]
     Indication: DEPRESSION
     Dosage: 75 MG PO
     Route: 048
  2. LUVOX [Suspect]
     Indication: DEPRESSION
     Dosage: PO
     Route: 048

REACTIONS (3)
  - NAUSEA [None]
  - SEROTONIN SYNDROME [None]
  - VOMITING [None]
